FAERS Safety Report 8801517 (Version 1)
Quarter: 2012Q4

REPORT INFORMATION
  Report Type: 
  Country: US (occurrence: US)
  Receive Date: 20120921
  Receipt Date: 20120921
  Transmission Date: 20130627
  Serious: No
  Sender: FDA-Public Use
  Company Number: US-B.I. PHARMACEUTICALS,INC./RIDGEFIELD-2012-BP-22699BP

PATIENT
  Age: 85 Year
  Sex: Female
  Weight: 64 kg

DRUGS (6)
  1. SPIRIVA [Suspect]
     Indication: CHRONIC OBSTRUCTIVE PULMONARY DISEASE
     Dosage: 18 mcg
     Route: 055
     Dates: start: 201204
  2. SPIRIVA [Suspect]
     Route: 048
     Dates: start: 20120913, end: 20120913
  3. SYNTHROID [Concomitant]
     Indication: HYPOTHYROIDISM
     Dosage: 0.88 mg
     Route: 048
     Dates: start: 1970
  4. AMLODIPINE [Concomitant]
     Indication: HYPERTENSION
     Dosage: 5 mg
     Route: 048
  5. LISINOPRIL [Concomitant]
     Indication: HYPERTENSION
     Dosage: 10 mg
     Route: 048
  6. VITAMIN D [Concomitant]
     Route: 048

REACTIONS (1)
  - Incorrect route of drug administration [Recovered/Resolved]
